FAERS Safety Report 6537825-2 (Version None)
Quarter: 2010Q1

REPORT INFORMATION
  Report Type: 
  Country: None (occurrence: None)
  Receive Date: 20100111
  Receipt Date: 20100106
  Transmission Date: 20100710
  Serious: Yes (Life-Threatening)
  Sender: FDA-Public Use
  Company Number: 2009SP039805

PATIENT
  Age: 62 Year
  Sex: Female
  Weight: 51 kg

DRUGS (10)
  1. ROCURONIUM BROMIDE [Suspect]
     Indication: NEUROMUSCULAR BLOCKING THERAPY
     Dosage: 130 MG; IV
     Route: 042
     Dates: start: 20091126, end: 20091126
  2. BRON ACE (L-CARBOCISTEINE) [Concomitant]
  3. NARON (ACETAMINOPHEN) [Concomitant]
  4. SEDES (ETHENZAMIDE) [Concomitant]
  5. SEVOFLURANE [Concomitant]
  6. ISOZOL [Concomitant]
  7. ULTIVA [Concomitant]
  8. EPHEDRIN [Concomitant]
  9. XYLOCAINE [Concomitant]
  10. ATROPINE [Concomitant]

REACTIONS (4)
  - CARDIAC ARREST [None]
  - THERAPEUTIC AGENT TOXICITY [None]
  - VENTRICULAR FIBRILLATION [None]
  - VENTRICULAR TACHYCARDIA [None]
